FAERS Safety Report 5699947-8 (Version None)
Quarter: 2008Q2

REPORT INFORMATION
  Report Type: 
  Country: None (occurrence: None)
  Receive Date: 20080410
  Receipt Date: 20080331
  Transmission Date: 20081010
  Serious: Yes (Other)
  Sender: FDA-Public Use
  Company Number: GB-MERCK-0803USA02125

PATIENT
  Age: 60 Year
  Sex: Male

DRUGS (6)
  1. PRINIVIL [Suspect]
     Indication: HYPERTENSION
     Route: 048
  2. ASPIRIN [Concomitant]
     Route: 065
  3. ATORVASTATIN [Concomitant]
     Route: 065
  4. METFORMIN HYDROCHLORIDE [Concomitant]
     Route: 065
  5. PIOGLITAZONE HYDROCHLORIDE [Concomitant]
     Route: 065
  6. VARDENAFIL [Concomitant]
     Route: 065

REACTIONS (2)
  - DRUG INEFFECTIVE [None]
  - HYPERTENSION [None]
